FAERS Safety Report 4752550-6 (Version None)
Quarter: 2005Q3

REPORT INFORMATION
  Report Type: 
  Country: None (occurrence: None)
  Receive Date: 20050823
  Receipt Date: 20050627
  Transmission Date: 20060218
  Serious: Yes (Hospitalization, Disabling)
  Sender: FDA-Public Use
  Company Number: 2005S1000196

PATIENT
  Sex: Female

DRUGS (3)
  1. ACITRETIN (ACITRETIN) [Suspect]
     Dosage: PO
     Route: 048
  2. TAMOXIFEN CITRATE [Concomitant]
  3. SERTRALINE HCL [Concomitant]

REACTIONS (4)
  - DIPLOPIA [None]
  - INTRACRANIAL PRESSURE INCREASED [None]
  - NAUSEA [None]
  - VOMITING [None]
